FAERS Safety Report 10466810 (Version 2)
Quarter: 2014Q4

REPORT INFORMATION
  Report Type: Spontaneous
  Country: JP (occurrence: JP)
  Receive Date: 20140922
  Receipt Date: 20141104
  Transmission Date: 20150528
  Serious: Yes (Other)
  Sender: FDA-Public Use
  Company Number: JP-TEVA-510665ISR

PATIENT
  Age: 71 Year
  Sex: Male

DRUGS (27)
  1. FILDESIN [Concomitant]
     Active Substance: VINDESINE SULFATE
     Dosage: 3 MILLIGRAM DAILY;
     Route: 042
     Dates: start: 20140521, end: 20140521
  2. DECADRON [Concomitant]
     Active Substance: DEXAMETHASONE
     Dosage: 40 MILLIGRAM DAILY;
     Route: 042
     Dates: start: 20140607, end: 20140609
  3. PARAPLATIN [Suspect]
     Active Substance: CARBOPLATIN
     Indication: T-CELL TYPE ACUTE LEUKAEMIA
     Dosage: 300 MILLIGRAM DAILY;
     Route: 042
     Dates: start: 20140521, end: 20140521
  4. PREDONINE [Concomitant]
     Active Substance: PREDNISOLONE\PREDNISOLONE ACETATE\PREDNISOLONE SODIUM SUCCINATE
     Indication: T-CELL TYPE ACUTE LEUKAEMIA
     Dosage: 100 MILLIGRAM DAILY;
     Route: 042
     Dates: start: 20140319, end: 20140323
  5. ENDOXAN [Concomitant]
     Active Substance: CYCLOPHOSPHAMIDE
     Dosage: 500 MILLIGRAM DAILY;
     Route: 042
     Dates: start: 20140409
  6. ONCOVIN [Concomitant]
     Active Substance: VINCRISTINE SULFATE
     Dosage: 1.5 MILLIGRAM DAILY;
     Route: 042
     Dates: start: 20140409, end: 20140409
  7. LASTET [Suspect]
     Active Substance: ETOPOSIDE
     Dosage: 100 MILLIGRAM DAILY;
     Route: 042
     Dates: start: 20140607, end: 20140609
  8. ADRIACIN [Concomitant]
     Active Substance: DOXORUBICIN HYDROCHLORIDE
     Dosage: 60 MILLIGRAM DAILY;
     Route: 042
     Dates: start: 20140409, end: 20140409
  9. ONCOVIN [Concomitant]
     Active Substance: VINCRISTINE SULFATE
     Indication: T-CELL TYPE ACUTE LEUKAEMIA
     Dosage: 1.7 MILLIGRAM DAILY;
     Route: 042
     Dates: start: 20140319, end: 20140319
  10. ONCOVIN [Concomitant]
     Active Substance: VINCRISTINE SULFATE
     Dosage: 1.7 MILLIGRAM DAILY;
     Dates: start: 20140226, end: 20140226
  11. PARAPLATIN [Suspect]
     Active Substance: CARBOPLATIN
     Dosage: 250 MILLIGRAM DAILY;
     Route: 042
     Dates: start: 20140607, end: 20140607
  12. TOPOTECIN [Suspect]
     Active Substance: IRINOTECAN HYDROCHLORIDE
     Indication: T-CELL TYPE ACUTE LEUKAEMIA
     Dosage: 40 MILLIGRAM DAILY;
     Route: 042
     Dates: start: 20140607, end: 20140609
  13. PREDONINE [Concomitant]
     Active Substance: PREDNISOLONE\PREDNISOLONE ACETATE\PREDNISOLONE SODIUM SUCCINATE
     Dosage: 60 MILLIGRAM DAILY;
     Route: 042
     Dates: start: 20140409, end: 20140409
  14. ADRIACIN [Concomitant]
     Active Substance: DOXORUBICIN HYDROCHLORIDE
     Indication: T-CELL TYPE ACUTE LEUKAEMIA
     Dosage: 60 MILLIGRAM DAILY;
     Route: 042
     Dates: start: 20140319, end: 20140319
  15. FILDESIN [Concomitant]
     Active Substance: VINDESINE SULFATE
     Indication: T-CELL TYPE ACUTE LEUKAEMIA
     Dosage: 3 MILLIGRAM DAILY;
     Route: 042
     Dates: start: 20140423, end: 20140423
  16. PREDONINE [Concomitant]
     Active Substance: PREDNISOLONE\PREDNISOLONE ACETATE\PREDNISOLONE SODIUM SUCCINATE
     Dosage: 60 MILLIGRAM DAILY;
     Route: 042
     Dates: start: 20140416, end: 20140416
  17. PREDONINE [Concomitant]
     Active Substance: PREDNISOLONE\PREDNISOLONE ACETATE\PREDNISOLONE SODIUM SUCCINATE
     Dosage: 100 MILLIGRAM DAILY;
     Route: 042
     Dates: start: 20140226, end: 20140302
  18. PREDONINE [Concomitant]
     Active Substance: PREDNISOLONE\PREDNISOLONE ACETATE\PREDNISOLONE SODIUM SUCCINATE
     Dosage: 60 MILLIGRAM DAILY;
     Route: 042
     Dates: start: 20140521, end: 20140523
  19. ENDOXAN [Concomitant]
     Active Substance: CYCLOPHOSPHAMIDE
     Dosage: 900 MILLIGRAM DAILY;
     Route: 042
     Dates: start: 20140226, end: 20140226
  20. FILGRASTIM BS INJ. ^NK^ (FILGRASTIM GENETIC RECOMBINATION) [Suspect]
     Active Substance: FILGRASTIM
     Dosage: 75 MICROGRAM/M2 DAILY;
     Route: 058
     Dates: start: 20140402, end: 20140402
  21. LASTET [Suspect]
     Active Substance: ETOPOSIDE
     Indication: T-CELL TYPE ACUTE LEUKAEMIA
     Dosage: 100 MILLIGRAM DAILY;
     Route: 042
     Dates: start: 20140521, end: 20140523
  22. ENDOXAN [Concomitant]
     Active Substance: CYCLOPHOSPHAMIDE
     Indication: T-CELL TYPE ACUTE LEUKAEMIA
     Dosage: 900 MILLIGRAM DAILY;
     Route: 042
     Dates: start: 20140319, end: 20140319
  23. ADRIACIN [Concomitant]
     Active Substance: DOXORUBICIN HYDROCHLORIDE
     Dosage: 40 MILLIGRAM DAILY;
     Route: 042
     Dates: start: 20140416, end: 20140416
  24. CYMERIN [Concomitant]
     Active Substance: RANIMUSTINE
     Indication: T-CELL TYPE ACUTE LEUKAEMIA
     Dosage: 50 MILLIGRAM DAILY;
     Route: 042
     Dates: start: 20140416, end: 20140416
  25. FILGRASTIM BS INJ. ^NK^ (FILGRASTIM GENETIC RECOMBINATION) [Suspect]
     Active Substance: FILGRASTIM
     Indication: NEUTROPENIA
     Dosage: 75 MICROGRAM/M2 DAILY;
     Route: 058
     Dates: start: 20140311, end: 20140315
  26. FILGRASTIM BS INJ. ^NK^ (FILGRASTIM GENETIC RECOMBINATION) [Suspect]
     Active Substance: FILGRASTIM
     Dosage: 75 MICROGRAM/M2 DAILY;
     Route: 058
     Dates: start: 20140602, end: 20140606
  27. ADRIACIN [Concomitant]
     Active Substance: DOXORUBICIN HYDROCHLORIDE
     Dosage: 60 MILLIGRAM DAILY;
     Route: 042
     Dates: start: 20140226, end: 20140226

REACTIONS (1)
  - Plateletcrit decreased [Recovering/Resolving]

NARRATIVE: CASE EVENT DATE: 20140614
